FAERS Safety Report 19795522 (Version 1)
Quarter: 2021Q3

REPORT INFORMATION
  Report Type: Spontaneous
  Country: US (occurrence: US)
  Receive Date: 20210904
  Receipt Date: 20210904
  Transmission Date: 20211014
  Serious: Yes (Disabling)
  Sender: FDA-Public Use
  Company Number: None

PATIENT
  Age: 21 Year
  Sex: Male
  Weight: 96.75 kg

DRUGS (1)
  1. FINASTERIDE. [Suspect]
     Active Substance: FINASTERIDE
     Indication: ALOPECIA
     Dates: start: 20191010, end: 20191208

REACTIONS (5)
  - Penis disorder [None]
  - Testicular pain [None]
  - Loss of libido [None]
  - Erectile dysfunction [None]
  - Feeling abnormal [None]

NARRATIVE: CASE EVENT DATE: 20191209
